FAERS Safety Report 4287390-8 (Version None)
Quarter: 2004Q1

REPORT INFORMATION
  Report Type: 
  Country: None (occurrence: None)
  Receive Date: 20040209
  Receipt Date: 20030618
  Transmission Date: 20041129
  Serious: No
  Sender: FDA-Public Use
  Company Number: US-GLAXOSMITHKLINE-A0413104A

PATIENT
  Age: 24 Year
  Sex: Female

DRUGS (2)
  1. PAXIL CR [Suspect]
     Dosage: 25MG PER DAY
     Route: 048
     Dates: start: 20030301
  2. MIRCETTE [Concomitant]

REACTIONS (3)
  - ANORGASMIA [None]
  - LIBIDO DECREASED [None]
  - SALIVARY HYPERSECRETION [None]
